FAERS Safety Report 22896243 (Version 3)
Quarter: 2023Q4

REPORT INFORMATION
  Report Type: Spontaneous
  Country: US (occurrence: US)
  Receive Date: 20230901
  Receipt Date: 20231218
  Transmission Date: 20240109
  Serious: No
  Sender: FDA-Public Use
  Company Number: US-PFIZER INC-PV202300149414

PATIENT
  Age: 78 Year
  Sex: Male
  Weight: 95.238 kg

DRUGS (5)
  1. BOSULIF [Suspect]
     Active Substance: BOSUTINIB MONOHYDRATE
     Indication: Chronic myeloid leukaemia
     Dosage: 400 MG, 1X/DAY (4 TABLETS)
     Route: 048
     Dates: start: 20230831
  2. BOSULIF [Suspect]
     Active Substance: BOSUTINIB MONOHYDRATE
     Dosage: 400 MG, 1X/DAY (4 TABLETS)
     Route: 048
     Dates: start: 20231011, end: 20231121
  3. NORVASC [Concomitant]
     Active Substance: AMLODIPINE BESYLATE
     Indication: Blood pressure abnormal
     Dosage: 10 MG, DAILY
     Route: 048
     Dates: start: 20230918
  4. VIAGRA [Concomitant]
     Active Substance: SILDENAFIL CITRATE
     Indication: Erectile dysfunction
     Dosage: 100 MG, DAILY (AS NEEDED)
     Route: 048
     Dates: start: 20230106
  5. XANAX [Concomitant]
     Active Substance: ALPRAZOLAM
     Indication: Anxiety
     Dosage: 1 MG, AS NEEDED (ONE TABLET BY MOUTH AT BEDTIME ONLY AS NEEDED)
     Route: 048
     Dates: start: 20230918, end: 20231016

REACTIONS (1)
  - Pain [Recovered/Resolved]

NARRATIVE: CASE EVENT DATE: 20230101
